FAERS Safety Report 18364498 (Version 2)
Quarter: 2020Q4

REPORT INFORMATION
  Report Type: Spontaneous
  Country: AU (occurrence: AU)
  Receive Date: 20201009
  Receipt Date: 20201022
  Transmission Date: 20210114
  Serious: Yes (Other)
  Sender: FDA-Public Use
  Company Number: NVSC2020AU265034

PATIENT
  Sex: Female

DRUGS (7)
  1. NILOTINIB [Suspect]
     Active Substance: NILOTINIB
     Indication: CHRONIC MYELOID LEUKAEMIA
     Dosage: UNK
     Route: 065
     Dates: start: 20110930, end: 20111030
  2. DASATINIB. [Suspect]
     Active Substance: DASATINIB
     Indication: CHRONIC MYELOID LEUKAEMIA
     Dosage: UNK
     Route: 065
     Dates: start: 20110730
  3. ASCIMINIB [Suspect]
     Active Substance: ASCIMINIB
     Indication: CHRONIC MYELOID LEUKAEMIA
  4. DASATINIB. [Suspect]
     Active Substance: DASATINIB
     Dosage: 40 MG, QD
     Route: 065
     Dates: end: 20200617
  5. IMATINIB. [Suspect]
     Active Substance: IMATINIB MESYLATE
     Indication: CHRONIC MYELOID LEUKAEMIA
     Dosage: UNK
     Route: 065
     Dates: start: 20110601, end: 20110730
  6. DASATINIB. [Suspect]
     Active Substance: DASATINIB
     Dosage: 20 MG, QOD
     Route: 065
  7. ASCIMINIB [Suspect]
     Active Substance: ASCIMINIB
     Indication: TYROSINE KINASE MUTATION
     Dosage: 1 DF, BID
     Route: 048

REACTIONS (19)
  - Swelling face [Unknown]
  - Migraine [Unknown]
  - Demyelinating polyneuropathy [Unknown]
  - Jaundice [Unknown]
  - Hepatic enzyme abnormal [Unknown]
  - Brain stem ischaemia [Unknown]
  - Ataxia [Not Recovered/Not Resolved]
  - Drug intolerance [Unknown]
  - Headache [Unknown]
  - Cytogenetic analysis abnormal [Unknown]
  - Vomiting [Unknown]
  - Hepatotoxicity [Unknown]
  - Blood bilirubin increased [Unknown]
  - Balance disorder [Unknown]
  - Muscle spasms [Unknown]
  - Abdominal pain [Unknown]
  - Dizziness [Unknown]
  - Diarrhoea [Unknown]
  - Confusional state [Unknown]
